FAERS Safety Report 17915581 (Version 1)
Quarter: 2020Q2

REPORT INFORMATION
  Report Type: Spontaneous
  Country: US (occurrence: US)
  Receive Date: 20200618
  Receipt Date: 20200618
  Transmission Date: 20200714
  Serious: Yes (Hospitalization)
  Sender: FDA-Public Use
  Company Number: None

PATIENT
  Age: 62 Year
  Sex: Male

DRUGS (1)
  1. MEKINIST [Suspect]
     Active Substance: TRAMETINIB DIMETHYL SULFOXIDE
     Route: 048
     Dates: start: 202001

REACTIONS (5)
  - Nausea [None]
  - Vomiting [None]
  - Pyrexia [None]
  - Fatigue [None]
  - Myalgia [None]

NARRATIVE: CASE EVENT DATE: 20200601
